FAERS Safety Report 22070230 (Version 1)
Quarter: 2023Q1

REPORT INFORMATION
  Report Type: Spontaneous
  Country: None (occurrence: US)
  Receive Date: 20230307
  Receipt Date: 20230307
  Transmission Date: 20230418
  Serious: No
  Sender: FDA-Public Use
  Company Number: US-Kindeva Drug Delivery L.P.-2138776

PATIENT
  Age: 82 Year
  Sex: Female

DRUGS (1)
  1. PROVENTIL HFA [Suspect]
     Active Substance: ALBUTEROL SULFATE
     Route: 055

REACTIONS (3)
  - Anosmia [Unknown]
  - Ageusia [Unknown]
  - Sensory loss [None]
